FAERS Safety Report 6776702-9 (Version None)
Quarter: 2010Q2

REPORT INFORMATION
  Report Type: 
  Country: None (occurrence: None)
  Receive Date: 20100617
  Receipt Date: 20100617
  Transmission Date: 20101027
  Serious: Yes (Hospitalization)
  Sender: FDA-Public Use
  Company Number: None

PATIENT
  Sex: Male
  Weight: 68 kg

DRUGS (20)
  1. CALCIUM CARBONATE [Suspect]
     Dosage: 500 MG
     Dates: end: 20100529
  2. VITAMIN D2 [Suspect]
     Dosage: 400 MG
     Dates: end: 20100529
  3. ASPIRIN [Concomitant]
  4. BICALULATAMID [Concomitant]
  5. GOSERELIN ACETATE [Concomitant]
  6. LORATADINE [Concomitant]
  7. LORAZEPAM [Concomitant]
  8. N/F LATANOPROST [Concomitant]
  9. POTASSIUM CHLORIDE [Concomitant]
  10. PREDNISOLONE ACE [Concomitant]
  11. TAMSULOSIN HCL [Concomitant]
  12. TEMAZEPAM [Concomitant]
  13. TRAZODONE HYDROCHLORIDE [Concomitant]
  14. AMLODIPINE BESYLATE [Concomitant]
  15. ARTIFICIAL TEARS [Concomitant]
  16. BENAZEPRIL HYDROCHLORIDE [Concomitant]
  17. FUROSEMIDE [Concomitant]
  18. FUROSEMIDE [Concomitant]
  19. OMEPRAZOLE [Concomitant]
  20. PROCHLORPERAZINE MALEATE [Concomitant]

REACTIONS (1)
  - SYNCOPE [None]
